FAERS Safety Report 25967684 (Version 2)
Quarter: 2025Q4

REPORT INFORMATION
  Report Type: Report from Study
  Country: US (occurrence: US)
  Receive Date: 20251028
  Receipt Date: 20251226
  Transmission Date: 20260117
  Serious: Yes (Hospitalization, Other)
  Sender: ACADIA PHARMACEUTICALS
  Company Number: US-ACADIA PHARMACEUTICALS INC.-ACA-2025-PIM-011566

PATIENT
  Age: 74 Year
  Sex: Male

DRUGS (6)
  1. NUPLAZID [Suspect]
     Active Substance: PIMAVANSERIN TARTRATE
     Indication: Parkinson^s disease
     Dosage: 34 MILLIGRAM, QD
     Route: 048
     Dates: start: 202509
  2. NUPLAZID [Suspect]
     Active Substance: PIMAVANSERIN TARTRATE
     Indication: Hallucination
  3. CELEXA [Concomitant]
     Active Substance: CITALOPRAM HYDROBROMIDE
  4. CARBIDOPA\LEVODOPA [Concomitant]
     Active Substance: CARBIDOPA\LEVODOPA
  5. MIRTAZAPINE [Concomitant]
     Active Substance: MIRTAZAPINE
  6. TRAZODONE [Concomitant]
     Active Substance: TRAZODONE HYDROCHLORIDE

REACTIONS (10)
  - Psychotic disorder [Unknown]
  - Delirium [Unknown]
  - Hallucination, visual [Unknown]
  - Paranoia [Unknown]
  - Weight decreased [Unknown]
  - Insomnia [Unknown]
  - Skin exfoliation [Unknown]
  - Blister [Unknown]
  - Oedema peripheral [Unknown]
  - Constipation [Unknown]

NARRATIVE: CASE EVENT DATE: 20251101
